FAERS Safety Report 16988647 (Version 5)
Quarter: 2020Q1

REPORT INFORMATION
  Report Type: Report from Study
  Country: FR (occurrence: FR)
  Receive Date: 20191104
  Receipt Date: 20200130
  Transmission Date: 20200409
  Serious: Yes (Hospitalization, Other)
  Sender: FDA-Public Use
  Company Number: FR-ROCHE-2372211

PATIENT
  Age: 76 Year
  Sex: Male
  Weight: 73 kg

DRUGS (10)
  1. EPLERENONE. [Concomitant]
     Active Substance: EPLERENONE
     Route: 048
  2. FUROSEMIDE. [Concomitant]
     Active Substance: FUROSEMIDE
     Route: 048
     Dates: start: 20190531, end: 201906
  3. PLAVIX [Concomitant]
     Active Substance: CLOPIDOGREL BISULFATE
  4. CLOPIDOGREL [Concomitant]
     Active Substance: CLOPIDOGREL BISULFATE
     Route: 048
  5. ENTRECTINIB [Suspect]
     Active Substance: ENTRECTINIB
     Indication: NEOPLASM
     Dosage: DATE OF LAST DOSE PRIOR TO ONSET OF NEUROLOGIC TROUBLES: 29/JUL/2019?DATE OF LAST DOSE PRIOR TO ONSE
     Route: 048
     Dates: start: 20190329
  6. PRAVASTATIN. [Concomitant]
     Active Substance: PRAVASTATIN
     Route: 048
  7. KARDEGIC [Concomitant]
     Active Substance: ASPIRIN DL-LYSINE
     Indication: HYPERKALAEMIA
  8. BISOPROLOL [Concomitant]
     Active Substance: BISOPROLOL
     Route: 048
  9. CARDENSIEL [Concomitant]
     Active Substance: BISOPROLOL FUMARATE
     Indication: HYPERKALAEMIA
  10. ACETYLSALICYLIC ACID [Concomitant]
     Active Substance: ASPIRIN
     Route: 065

REACTIONS (4)
  - Ventricular hypokinesia [Recovered/Resolved]
  - Acute kidney injury [Recovered/Resolved]
  - Epilepsy [Recovered/Resolved with Sequelae]
  - Bladder diverticulum [Recovered/Resolved with Sequelae]

NARRATIVE: CASE EVENT DATE: 20190708
